FAERS Safety Report 5399192-X (Version None)
Quarter: 2007Q3

REPORT INFORMATION
  Report Type: 
  Country: None (occurrence: None)
  Receive Date: 20070727
  Receipt Date: 20070717
  Transmission Date: 20080115
  Serious: Yes (Hospitalization, Other)
  Sender: FDA-Public Use
  Company Number: US-ASTRAZENECA-2007UW12562

PATIENT

DRUGS (2)
  1. SEROQUEL [Suspect]
     Route: 048
  2. METHADONE HCL [Interacting]

REACTIONS (5)
  - BLOOD GLUCOSE INCREASED [None]
  - BLOOD TRIGLYCERIDES INCREASED [None]
  - DRUG INTERACTION [None]
  - PALPITATIONS [None]
  - WEIGHT INCREASED [None]
